FAERS Safety Report 4287265-4 (Version None)
Quarter: 2004Q1

REPORT INFORMATION
  Report Type: 
  Country: None (occurrence: None)
  Receive Date: 20040126
  Receipt Date: 20031007
  Transmission Date: 20041129
  Serious: No
  Sender: FDA-Public Use
  Company Number: USA030843855

PATIENT
  Age: 56 Year
  Sex: Female
  Weight: 52 kg

DRUGS (4)
  1. FORTEO [Suspect]
     Dates: start: 20030601
  2. CALCIUM [Concomitant]
  3. TAMOXIFEN [Concomitant]
  4. MULTIVITAMIN [Concomitant]

REACTIONS (4)
  - FATIGUE [None]
  - FEELING HOT [None]
  - FLUSHING [None]
  - HYPERCALCAEMIA [None]
